FAERS Safety Report 25280342 (Version 4)
Quarter: 2025Q3

REPORT INFORMATION
  Report Type: Report from Study
  Country: US (occurrence: US)
  Receive Date: 20250507
  Receipt Date: 20250806
  Transmission Date: 20251021
  Serious: Yes (Hospitalization, Other)
  Sender: ALEXION PHARMACEUTICALS
  Company Number: US-AstraZeneca-CH-00863116A

PATIENT
  Age: 75 Year
  Sex: Female

DRUGS (1)
  1. STRENSIQ [Suspect]
     Active Substance: ASFOTASE ALFA
     Dosage: 160 MILLIGRAM, TIW
     Dates: start: 20250122, end: 202503

REACTIONS (14)
  - Aortic arteriosclerosis [Not Recovered/Not Resolved]
  - Asthenia [Recovered/Resolved with Sequelae]
  - Dyspnoea [Recovered/Resolved with Sequelae]
  - Tachycardia [Recovered/Resolved with Sequelae]
  - Dizziness [Recovered/Resolved with Sequelae]
  - Hyperhidrosis [Recovered/Resolved with Sequelae]
  - Heart rate increased [Recovered/Resolved with Sequelae]
  - Atrial fibrillation [Unknown]
  - Pain in extremity [Not Recovered/Not Resolved]
  - Drug ineffective [Unknown]
  - Contusion [Unknown]
  - Cardiac discomfort [Unknown]
  - Bone loss [Unknown]
  - Tooth loss [Unknown]

NARRATIVE: CASE EVENT DATE: 20250301
